FAERS Safety Report 20088605 (Version 1)
Quarter: 2021Q4

REPORT INFORMATION
  Report Type: Spontaneous
  Country: FR (occurrence: FR)
  Receive Date: 20211119
  Receipt Date: 20211119
  Transmission Date: 20220303
  Serious: Yes (Hospitalization, Congenital Anomaly, Other)
  Sender: FDA-Public Use
  Company Number: FR-ABBVIE-21K-056-4162627-00

PATIENT
  Sex: Male

DRUGS (1)
  1. VALPROATE SODIUM [Suspect]
     Active Substance: VALPROATE SODIUM
     Indication: Maternal exposure timing unspecified
     Route: 064

REACTIONS (30)
  - Phimosis [Unknown]
  - Dysmorphism [Unknown]
  - Congenital hand malformation [Unknown]
  - Dentofacial anomaly [Unknown]
  - Tonsillitis [Unknown]
  - Malocclusion [Unknown]
  - Joint laxity [Unknown]
  - Ear infection [Unknown]
  - Gastroenteritis [Unknown]
  - Dehydration [Unknown]
  - Varicella [Unknown]
  - Gastroenteritis [Unknown]
  - Nasal discomfort [Unknown]
  - Nasopharyngitis [Unknown]
  - Lower respiratory tract congestion [Unknown]
  - Rhinitis [Unknown]
  - Upper-airway cough syndrome [Unknown]
  - Rhinorrhoea [Unknown]
  - Cough [Unknown]
  - Bronchitis [Unknown]
  - Ear congestion [Unknown]
  - Ear pain [Unknown]
  - Upper-airway cough syndrome [Unknown]
  - Astigmatism [Unknown]
  - Hypermetropia [Unknown]
  - Gastroenteritis [Unknown]
  - Vomiting [Unknown]
  - Enuresis [Unknown]
  - Diarrhoea [Unknown]
  - Abdominal pain [Unknown]

NARRATIVE: CASE EVENT DATE: 20070101
